FAERS Safety Report 18064343 (Version 1)
Quarter: 2020Q3

REPORT INFORMATION
  Report Type: Spontaneous
  Country: US (occurrence: US)
  Receive Date: 20200723
  Receipt Date: 20200723
  Transmission Date: 20201103
  Serious: Yes (Death)
  Sender: FDA-Public Use
  Company Number: None

PATIENT
  Age: 90 Year
  Sex: Male
  Weight: 95 kg

DRUGS (1)
  1. REMDESIVIR. [Suspect]
     Active Substance: REMDESIVIR

REACTIONS (4)
  - Pain [None]
  - Bradycardia [None]
  - Sedation [None]
  - Respiratory failure [None]

NARRATIVE: CASE EVENT DATE: 20200721
